FAERS Safety Report 6366120-X (Version None)
Quarter: 2009Q3

REPORT INFORMATION
  Report Type: 
  Country: None (occurrence: None)
  Receive Date: 20090920
  Receipt Date: 20090821
  Transmission Date: 20100115
  Serious: No
  Sender: FDA-Public Use
  Company Number: US-BAUSCH-2009BL004262

PATIENT
  Age: 47 Year
  Sex: Male

DRUGS (4)
  1. ALAWAY [Suspect]
     Indication: SEASONAL ALLERGY
     Route: 047
     Dates: start: 20090721, end: 20090820
  2. DIOVAN [Concomitant]
  3. FLEXERIL [Concomitant]
  4. ASPIRIN [Concomitant]

REACTIONS (2)
  - EYE DISCHARGE [None]
  - EYE IRRITATION [None]
